FAERS Safety Report 16764345 (Version 1)
Quarter: 2019Q3

REPORT INFORMATION
  Report Type: Spontaneous
  Country: ZA (occurrence: ZA)
  Receive Date: 20190902
  Receipt Date: 20190902
  Transmission Date: 20191005
  Serious: Yes (Other)
  Sender: FDA-Public Use
  Company Number: ZA-GLAXOSMITHKLINE-B0119915A

PATIENT
  Age: 30 Year
  Sex: Male
  Weight: 85 kg

DRUGS (2)
  1. UNKNOWN MEDICATION [Concomitant]
     Active Substance: UNSPECIFIED INGREDIENT
     Indication: BRONCHITIS
     Route: 048
     Dates: start: 20010722, end: 20010728
  2. RELENZA [Suspect]
     Active Substance: ZANAMIVIR
     Indication: UPPER RESPIRATORY TRACT INFECTION
     Dosage: UNK UNK, UNK
     Route: 055
     Dates: start: 20010721, end: 20010722

REACTIONS (2)
  - Dissociative disorder [Recovered/Resolved]
  - Feeling abnormal [Unknown]

NARRATIVE: CASE EVENT DATE: 20010722
